FAERS Safety Report 20038698 (Version 1)
Quarter: 2021Q4

REPORT INFORMATION
  Report Type: Report from Study
  Country: US (occurrence: None)
  Receive Date: 20211105
  Receipt Date: 20211105
  Transmission Date: 20220304
  Serious: Yes (Death)
  Sender: FDA-Public Use
  Company Number: 2021A794029

PATIENT
  Sex: Female
  Weight: 88.9 kg

DRUGS (13)
  1. LYNPARZA [Suspect]
     Active Substance: OLAPARIB
     Indication: Breast cancer female
     Route: 048
     Dates: start: 20211005
  2. ELIQUIS [Concomitant]
     Active Substance: APIXABAN
  3. DEXAMETHASONE [Concomitant]
     Active Substance: DEXAMETHASONE
  4. SYNTHROID [Concomitant]
     Active Substance: LEVOTHYROXINE SODIUM
  5. ZOFRAN [Concomitant]
     Active Substance: ONDANSETRON HYDROCHLORIDE
  6. GABAPENTIN [Concomitant]
     Active Substance: GABAPENTIN
  7. PANTOPRAZOLE SODIUM [Concomitant]
     Active Substance: PANTOPRAZOLE SODIUM
  8. ACYCLOVIR [Concomitant]
     Active Substance: ACYCLOVIR
  9. CLARITIN [Concomitant]
     Active Substance: LORATADINE
  10. PROBIOTICS NOS [Concomitant]
     Active Substance: PROBIOTICS NOS
  11. PAXIL [Concomitant]
     Active Substance: PAROXETINE HYDROCHLORIDE
  12. REGLAN [Concomitant]
     Active Substance: METOCLOPRAMIDE HYDROCHLORIDE
  13. ZARXIO [Concomitant]
     Active Substance: FILGRASTIM-SNDZ

REACTIONS (1)
  - Death [Fatal]
